FAERS Safety Report 9656143 (Version 1)
Quarter: 2013Q4

REPORT INFORMATION
  Report Type: Spontaneous
  Country: ES (occurrence: ES)
  Receive Date: 20131030
  Receipt Date: 20131030
  Transmission Date: 20140711
  Serious: Yes (Hospitalization, Other)
  Sender: FDA-Public Use
  Company Number: PHHY2013ES121139

PATIENT
  Sex: 0

DRUGS (2)
  1. GILENYA [Suspect]
     Route: 048
  2. GILENYA [Suspect]
     Route: 048

REACTIONS (3)
  - Sepsis [Unknown]
  - Urinary tract infection [Unknown]
  - Lymphocyte count decreased [Unknown]
